FAERS Safety Report 7164722-4 (Version None)
Quarter: 2010Q4

REPORT INFORMATION
  Report Type: 
  Country: None (occurrence: None)
  Receive Date: 20101215
  Receipt Date: 20101206
  Transmission Date: 20110411
  Serious: Yes (Life-Threatening, Hospitalization)
  Sender: FDA-Public Use
  Company Number: FR-PFIZER INC-2010164696

PATIENT
  Age: 49 Year
  Sex: Female

DRUGS (10)
  1. XANAX [Suspect]
     Dosage: 7.5 MG, SINGLE
     Route: 048
     Dates: start: 20090826, end: 20090826
  2. NOCTRAN 10 [Suspect]
     Dosage: 30 DF, SINGLE
     Route: 048
     Dates: start: 20090826, end: 20090826
  3. NEURONTIN [Concomitant]
  4. DITROPAN [Concomitant]
  5. LIORESAL [Concomitant]
  6. EFFEXOR XR [Concomitant]
  7. ZOXAN LP [Concomitant]
  8. NEXIUM [Concomitant]
  9. TOPALGIC [Concomitant]
  10. RIVOTRIL [Concomitant]

REACTIONS (3)
  - COMA [None]
  - DRUG TOXICITY [None]
  - INTENTIONAL OVERDOSE [None]
